FAERS Safety Report 8016166-0 (Version None)
Quarter: 2011Q4

REPORT INFORMATION
  Report Type: 
  Country: None (occurrence: None)
  Receive Date: 20111227
  Receipt Date: 20111227
  Transmission Date: 20120403
  Serious: Yes (Hospitalization)
  Sender: FDA-Public Use
  Company Number: None

PATIENT
  Age: 70 Year
  Sex: Male
  Weight: 75.2 kg

DRUGS (1)
  1. VANCOMYCIN [Suspect]
     Indication: ENDOCARDITIS
     Dosage: 1000 MG OTHER IV
     Route: 042
     Dates: start: 20111115, end: 20111208

REACTIONS (1)
  - THROMBOCYTOPENIA [None]
